FAERS Safety Report 20430532 (Version 1)
Quarter: 2022Q1

REPORT INFORMATION
  Report Type: Spontaneous
  Country: FR (occurrence: FR)
  Receive Date: 20220204
  Receipt Date: 20220204
  Transmission Date: 20220423
  Serious: Yes (Other)
  Sender: FDA-Public Use
  Company Number: FR-GLAXOSMITHKLINE-FR2021EME151412

PATIENT
  Age: 7 Year
  Sex: Male
  Weight: 30 kg

DRUGS (3)
  1. ALBUTEROL [Suspect]
     Active Substance: ALBUTEROL
     Indication: Congenital myasthenic syndrome
     Dosage: 5 MILLILITER (5 ML X 2/DAY)
     Route: 065
     Dates: start: 201912
  2. VENTOLIN [Suspect]
     Active Substance: ALBUTEROL SULFATE
     Indication: Congenital myasthenic syndrome
     Dosage: UNK (2MG/5ML)
     Route: 065
  3. ALBUTEROL [Concomitant]
     Active Substance: ALBUTEROL
     Indication: Muscular weakness
     Dosage: UNK (2 MG/5 ML)
     Route: 065
     Dates: start: 201907

REACTIONS (3)
  - Hypokalaemia [Unknown]
  - Tachycardia [Unknown]
  - Sinus tachycardia [Not Recovered/Not Resolved]

NARRATIVE: CASE EVENT DATE: 20201214
